FAERS Safety Report 8816678 (Version 2)
Quarter: 2012Q4

REPORT INFORMATION
  Report Type: Spontaneous
  Country: US (occurrence: None)
  Receive Date: 20120928
  Receipt Date: 20121024
  Transmission Date: 20130627
  Serious: Yes (Death, Life-Threatening, Other)
  Sender: FDA-Public Use
  Company Number: MC201200592

PATIENT
  Age: 60 Year
  Sex: Female
  Weight: 145 kg

DRUGS (3)
  1. ANGIOMAX [Suspect]
     Indication: PERCUTANEOUS CORONARY INTERVENTION
     Route: 040
     Dates: start: 20120914, end: 20120914
  2. ANGIOMAX [Suspect]
     Indication: PERCUTANEOUS CORONARY INTERVENTION
     Dosage: 1.75 MG/KG/HR, INTRAVENOUS
     Route: 042
     Dates: start: 20120914, end: 20120914
  3. TICAGRELOR [Concomitant]

REACTIONS (7)
  - Cardiac arrest [None]
  - Coronary artery dissection [None]
  - Shock [None]
  - Coronary artery thrombosis [None]
  - Epistaxis [None]
  - Haemorrhage [None]
  - Pulmonary alveolar haemorrhage [None]
